FAERS Safety Report 12519575 (Version 1)
Quarter: 2016Q3

REPORT INFORMATION
  Report Type: Spontaneous
  Country: DE (occurrence: DE)
  Receive Date: 20160701
  Receipt Date: 20160701
  Transmission Date: 20161109
  Serious: No
  Sender: FDA-Public Use
  Company Number: DE-LUPIN PHARMACEUTICALS INC.-2015-04214

PATIENT
  Sex: Female

DRUGS (1)
  1. SIMVASTATIN-HORMOSAN 40MG [Suspect]
     Active Substance: SIMVASTATIN
     Indication: BLOOD CHOLESTEROL INCREASED
     Dosage: IN THE EVENING
     Route: 065
     Dates: start: 201507

REACTIONS (1)
  - Swelling face [Unknown]
